FAERS Safety Report 21027016 (Version 2)
Quarter: 2022Q3

REPORT INFORMATION
  Report Type: Spontaneous
  Country: US (occurrence: US)
  Receive Date: 20220630
  Receipt Date: 20220826
  Transmission Date: 20221027
  Serious: No
  Sender: FDA-Public Use
  Company Number: US-BRISTOL-MYERS SQUIBB COMPANY-2022-054058

PATIENT
  Age: 84 Year
  Sex: Male

DRUGS (1)
  1. THALOMID [Suspect]
     Active Substance: THALIDOMIDE
     Indication: Myelodysplastic syndrome
     Dosage: TAKE 1 CAPSULE BY MOUTH WHOLE EVERY NIGHT AT BEDTIME, AT LEAST 1 HOUR AFTER EVENING MEAL
     Route: 048

REACTIONS (2)
  - Adverse event [Unknown]
  - Haemoglobin decreased [Unknown]
